FAERS Safety Report 4337141-3 (Version None)
Quarter: 2004Q1

REPORT INFORMATION
  Report Type: 
  Country: None (occurrence: None)
  Receive Date: 20040329
  Receipt Date: 20040202
  Transmission Date: 20041129
  Serious: No
  Sender: FDA-Public Use
  Company Number: USA040258290

PATIENT
  Age: 11 Year
  Sex: Male
  Weight: 45 kg

DRUGS (6)
  1. STRATTERA [Suspect]
     Indication: VISION BLURRED
     Dosage: 20 MG/DAY
     Dates: start: 20031001
  2. TRAZADONE (TRAZADONE) [Concomitant]
  3. WELLBUTRIN [Concomitant]
  4. ZOLOFT [Concomitant]
  5. PAXIL [Concomitant]
  6. ADDERALL 10 [Concomitant]

REACTIONS (1)
  - ANGER [None]
